FAERS Safety Report 15344733 (Version 1)
Quarter: 2018Q3

REPORT INFORMATION
  Report Type: Spontaneous
  Country: US (occurrence: US)
  Receive Date: 20180903
  Receipt Date: 20180903
  Transmission Date: 20181010
  Serious: Yes (Death, Other)
  Sender: FDA-Public Use
  Company Number: PHHY2018US082467

PATIENT
  Age: 7 Year
  Sex: Male

DRUGS (11)
  1. CARBOPLATIN. [Suspect]
     Active Substance: CARBOPLATIN
     Indication: HODGKIN^S DISEASE
     Dosage: 400 MG/M2, ON DAY 1
     Route: 042
  2. VINCRISTINE [Suspect]
     Active Substance: VINCRISTINE
     Indication: HODGKIN^S DISEASE
     Dosage: 1.4 MG/M2 ON DAYS 1 AND 8
     Route: 042
  3. IFOSFAMIDE. [Suspect]
     Active Substance: IFOSFAMIDE
     Indication: HODGKIN^S DISEASE
     Dosage: 1500 MG/M2 ON DAYS 1?3
     Route: 042
  4. PREDNISONE. [Suspect]
     Active Substance: PREDNISONE
     Indication: HODGKIN^S DISEASE
     Dosage: 40 MG/M2, QD DAYS 1?14
     Route: 048
  5. PROCARBAZINE [Suspect]
     Active Substance: PROCARBAZINE
     Indication: HODGKIN^S DISEASE
     Dosage: 100 MG/M2, DAYS 1?14
     Route: 048
  6. METHOTREXATE. [Suspect]
     Active Substance: METHOTREXATE
     Indication: HODGKIN^S DISEASE
     Dosage: 3 G/M2 ON DAYS 1 AND 15
     Route: 042
  7. GRANULOCYTE COLONY STIMULATING FACTOR [Suspect]
     Active Substance: GRANULOCYTE COLONY-STIMULATING FACTOR NOS
     Indication: HODGKIN^S DISEASE
     Dosage: UNK
     Route: 065
  8. DOXORUBICIN [Suspect]
     Active Substance: DOXORUBICIN
     Indication: HODGKIN^S DISEASE
     Dosage: 25 MG/M2, ON DAYS 1 AND 15
     Route: 042
  9. VINBLASTINE [Suspect]
     Active Substance: VINBLASTINE
     Indication: HODGKIN^S DISEASE
     Dosage: 6 MG/M2 ON DAYS 1 AND 15
     Route: 042
  10. ETOPOSIDE. [Suspect]
     Active Substance: ETOPOSIDE
     Indication: HODGKIN^S DISEASE
     Dosage: 100 MG/M2 ON DAYS 1?2
     Route: 042
  11. CYCLOPHOSPHAMIDE. [Suspect]
     Active Substance: CYCLOPHOSPHAMIDE
     Indication: HODGKIN^S DISEASE
     Dosage: 600 MG/M2, ON DAYS 1 AND 8
     Route: 042

REACTIONS (8)
  - Hodgkin^s disease [Fatal]
  - Bone marrow failure [Unknown]
  - Ataxia [Unknown]
  - Febrile neutropenia [Unknown]
  - Cholecystitis [Unknown]
  - Vomiting [Unknown]
  - Fungal infection [Unknown]
  - Neutropenia [Unknown]
